FAERS Safety Report 12233901 (Version 3)
Quarter: 2016Q2

REPORT INFORMATION
  Report Type: Spontaneous
  Country: SE (occurrence: SE)
  Receive Date: 20160404
  Receipt Date: 20160620
  Transmission Date: 20160815
  Serious: Yes (Death, Hospitalization)
  Sender: FDA-Public Use
  Company Number: SE-JNJFOC-20160327795

PATIENT
  Sex: Male
  Weight: 93.1 kg

DRUGS (62)
  1. XOFIGO [Suspect]
     Active Substance: RADIUM RA-223 DICHLORIDE
     Indication: PROSTATE CANCER
     Route: 065
     Dates: start: 20160301, end: 20160301
  2. LOSARTAN. [Concomitant]
     Active Substance: LOSARTAN
     Route: 048
     Dates: start: 20150202
  3. CLOPIDOGREL [Concomitant]
     Active Substance: CLOPIDOGREL BISULFATE
     Indication: PROPHYLAXIS
     Route: 048
     Dates: start: 20150505
  4. NITROLINGUAL [Concomitant]
     Active Substance: NITROGLYCERIN
     Route: 060
  5. SERTRALINE [Concomitant]
     Active Substance: SERTRALINE HYDROCHLORIDE
     Route: 065
  6. PARACETAMOL [Concomitant]
     Active Substance: ACETAMINOPHEN
     Route: 065
  7. BETAMETHASONE. [Concomitant]
     Active Substance: BETAMETHASONE
     Route: 065
  8. MINIFOM [Concomitant]
     Route: 065
  9. MORPHINE [Concomitant]
     Active Substance: MORPHINE
     Indication: BACK PAIN
     Route: 048
     Dates: start: 20160304
  10. STILNOCT [Concomitant]
     Active Substance: ZOLPIDEM TARTRATE
     Route: 065
  11. BETAPRED [Concomitant]
     Active Substance: BETAMETHASONE SODIUM PHOSPHATE
     Route: 065
  12. NORADRENALIN [Concomitant]
     Active Substance: NOREPINEPHRINE\NOREPINEPHRINE BITARTRATE
     Route: 065
  13. BUDESONID [Concomitant]
     Active Substance: BUDESONIDE
     Route: 065
  14. ZYTIGA [Suspect]
     Active Substance: ABIRATERONE ACETATE
     Indication: PROSTATE CANCER
     Route: 048
     Dates: start: 20160202, end: 201603
  15. PREDNISONE. [Suspect]
     Active Substance: PREDNISONE
     Indication: PROSTATE CANCER
     Route: 048
     Dates: start: 20160202, end: 20160315
  16. RELISTOR [Concomitant]
     Active Substance: METHYLNALTREXONE BROMIDE
     Route: 065
  17. ZOPIKLON PILUM [Concomitant]
     Route: 065
  18. SODIUM CHLORIDE. [Concomitant]
     Active Substance: SODIUM CHLORIDE
     Route: 042
  19. DEXMEDETOMIDINE. [Concomitant]
     Active Substance: DEXMEDETOMIDINE
     Route: 065
  20. MICROLAX [Concomitant]
     Route: 065
  21. ZOLOFT [Concomitant]
     Active Substance: SERTRALINE HYDROCHLORIDE
     Route: 065
  22. CLONIDINE. [Concomitant]
     Active Substance: CLONIDINE
     Route: 065
  23. ANIDULAFUNGIN [Concomitant]
     Active Substance: ANIDULAFUNGIN
     Route: 065
  24. XOFIGO [Suspect]
     Active Substance: RADIUM RA-223 DICHLORIDE
     Indication: PROSTATE CANCER
     Route: 065
     Dates: start: 20160202, end: 20160202
  25. MORFIN MEDA [Concomitant]
     Active Substance: MORPHINE SULFATE
     Indication: BACK PAIN
     Route: 048
     Dates: start: 20160301
  26. LAXIDO APELSIN [Concomitant]
     Route: 048
  27. FURIX [Concomitant]
     Active Substance: FUROSEMIDE
     Route: 042
  28. GLUCOSE [Concomitant]
     Active Substance: DEXTROSE
     Route: 065
  29. PROPRANOLOL [Concomitant]
     Active Substance: PROPRANOLOL\PROPRANOLOL HYDROCHLORIDE
     Route: 042
  30. ATROVENT [Concomitant]
     Active Substance: IPRATROPIUM BROMIDE
     Route: 065
  31. FENTANYL. [Concomitant]
     Active Substance: FENTANYL
     Route: 065
  32. NALOXONE HYDROCHLORIDE. [Concomitant]
     Active Substance: NALOXONE HYDROCHLORIDE
     Route: 065
  33. SODIUM PICOSULFATE [Concomitant]
     Active Substance: SODIUM PICOSULFATE
     Route: 048
  34. SOBRIL [Concomitant]
     Active Substance: OXAZEPAM
     Route: 045
  35. EUSAPRIM [Concomitant]
     Route: 065
  36. DALTEPARIN [Concomitant]
     Active Substance: DALTEPARIN
     Route: 065
  37. STILNOCT [Concomitant]
     Active Substance: ZOLPIDEM TARTRATE
     Route: 065
  38. OMEPRAZOLE. [Concomitant]
     Active Substance: OMEPRAZOLE
     Route: 065
     Dates: start: 20120223
  39. NUTRIFLEX PERI [Concomitant]
     Active Substance: VITAMINS
     Route: 065
  40. PULMICORT TURBUHALER [Concomitant]
     Active Substance: BUDESONIDE
     Route: 045
  41. PRIMPERAN [Concomitant]
     Active Substance: METOCLOPRAMIDE HYDROCHLORIDE
     Route: 065
  42. METOTAB [Concomitant]
     Active Substance: METHOTREXATE SODIUM
     Route: 065
  43. COZAAR [Concomitant]
     Active Substance: LOSARTAN POTASSIUM
     Route: 065
  44. MACROGOL [Concomitant]
     Active Substance: POLYETHYLENE GLYCOLS
     Route: 065
  45. ALBUMIN [Concomitant]
     Active Substance: ALBUMIN HUMAN
     Route: 065
  46. SERTRALINE [Concomitant]
     Active Substance: SERTRALINE HYDROCHLORIDE
     Route: 048
     Dates: start: 20150113
  47. METHOTREXATE SODIUM. [Concomitant]
     Active Substance: METHOTREXATE SODIUM
     Indication: PEMPHIGOID
     Route: 065
     Dates: start: 20141106
  48. ZOLPIDEM [Concomitant]
     Active Substance: ZOLPIDEM\ZOLPIDEM TARTRATE
     Route: 065
     Dates: start: 20001213
  49. SALBUTAMOL [Concomitant]
     Active Substance: ALBUTEROL
     Route: 065
  50. AZITHROMYCIN ANHYDROUS. [Concomitant]
     Active Substance: AZITHROMYCIN ANHYDROUS
     Route: 065
  51. GLYCERYL TRINITRATE [Concomitant]
     Active Substance: NITROGLYCERIN
     Route: 060
  52. INSULIN ASPART [Concomitant]
     Active Substance: INSULIN ASPART
     Route: 065
  53. GABAPENTIN. [Concomitant]
     Active Substance: GABAPENTIN
     Indication: BACK PAIN
     Route: 048
     Dates: start: 20160307
  54. FOLIC ACID. [Concomitant]
     Active Substance: FOLIC ACID
     Route: 048
     Dates: start: 20141104
  55. METHOTREXATE SODIUM. [Concomitant]
     Active Substance: METHOTREXATE SODIUM
     Indication: PEMPHIGOID
     Dosage: SINCE APPROXIMATELY 2 YEARS
     Route: 065
     Dates: start: 20111106
  56. CLOPIDOGREL [Concomitant]
     Active Substance: CLOPIDOGREL BISULFATE
     Indication: PROPHYLAXIS
     Route: 048
     Dates: start: 20150506
  57. PIPERACILLIN AND TAZOBACTAM [Concomitant]
     Active Substance: PIPERACILLIN SODIUM\TAZOBACTAM SODIUM
     Route: 065
  58. AERIUS [Concomitant]
     Active Substance: DESLORATADINE
     Route: 065
  59. ESOMEPRAZOLE [Concomitant]
     Active Substance: ESOMEPRAZOLE
     Route: 065
  60. FUROSEMIDE. [Concomitant]
     Active Substance: FUROSEMIDE
     Route: 065
  61. PLAVIX [Concomitant]
     Active Substance: CLOPIDOGREL BISULFATE
     Route: 065
  62. MIDAZOLAM [Concomitant]
     Active Substance: MIDAZOLAM\MIDAZOLAM HYDROCHLORIDE
     Route: 065

REACTIONS (2)
  - Interstitial lung disease [Fatal]
  - Circulatory collapse [Fatal]
